FAERS Safety Report 6292319-7 (Version None)
Quarter: 2009Q3

REPORT INFORMATION
  Report Type: 
  Country: None (occurrence: None)
  Receive Date: 20090731
  Receipt Date: 20070726
  Transmission Date: 20100115
  Serious: Yes (Other)
  Sender: FDA-Public Use
  Company Number: US-ASTRAZENECA-2007UW12096

PATIENT
  Age: 15187 Day
  Sex: Male
  Weight: 86.2 kg

DRUGS (25)
  1. SEROQUEL [Suspect]
     Indication: SCHIZOPHRENIA
     Dosage: 100-1400 MG
     Route: 048
     Dates: start: 20000810
  2. SEROQUEL [Suspect]
     Indication: DEPRESSION
     Dosage: 100-1400 MG
     Route: 048
     Dates: start: 20000810
  3. SEROQUEL [Suspect]
     Indication: AGITATION
     Dosage: 100-1400 MG
     Route: 048
     Dates: start: 20000810
  4. SEROQUEL [Suspect]
     Indication: PARANOIA
     Dosage: 100-1400 MG
     Route: 048
     Dates: start: 20000810
  5. SEROQUEL [Suspect]
     Indication: INSOMNIA
     Dosage: 100-1400 MG
     Route: 048
     Dates: start: 20000810
  6. SEROQUEL [Suspect]
     Indication: AFFECTIVE DISORDER
     Dosage: 100-1400 MG
     Route: 048
     Dates: start: 20000810
  7. SEROQUEL [Suspect]
     Route: 048
     Dates: start: 20000901, end: 20060901
  8. SEROQUEL [Suspect]
     Route: 048
     Dates: start: 20000901, end: 20060901
  9. SEROQUEL [Suspect]
     Route: 048
     Dates: start: 20000901, end: 20060901
  10. SEROQUEL [Suspect]
     Route: 048
     Dates: start: 20000901, end: 20060901
  11. SEROQUEL [Suspect]
     Route: 048
     Dates: start: 20000901, end: 20060901
  12. SEROQUEL [Suspect]
     Route: 048
     Dates: start: 20000901, end: 20060901
  13. SIMVASTATIN [Concomitant]
     Indication: BLOOD CHOLESTEROL INCREASED
     Dosage: 10 MG HALF TAB BEDTIME
     Route: 048
     Dates: start: 20030708
  14. SIMVASTATIN [Concomitant]
     Indication: SLEEP DISORDER
     Dosage: 10 MG HALF TAB BEDTIME
     Route: 048
     Dates: start: 20030708
  15. ATENOLOL [Concomitant]
     Route: 048
     Dates: start: 20010802
  16. FOSINOPRIL SODIUM [Concomitant]
     Indication: PROTEINURIA
     Dosage: 10 MG HALF TAB, EVERY MORNING
     Route: 048
     Dates: start: 20070806
  17. TERAZOSIN HCL [Concomitant]
     Indication: DYSURIA
     Dosage: 5 MG, BEDTIME
     Route: 048
     Dates: start: 20070806
  18. TRAZODONE HCL [Concomitant]
     Indication: INSOMNIA
     Dosage: 100 MG, 4-5 TABS, AT BEDTIME
     Route: 048
     Dates: start: 20070806
  19. DIVALPROEX SODIUM [Concomitant]
     Dosage: 500 MG, TWO TABLETS BY MONTH AT BEDTIME
     Route: 048
     Dates: start: 20070509
  20. DOXEPIN HCL [Concomitant]
     Indication: INSOMNIA
     Dosage: 100 MG, AT BEDTIME
     Route: 048
     Dates: start: 20070509
  21. CITALOPRAM HYDROBROMIDE [Concomitant]
     Indication: DEPRESSION
     Dosage: 40 MG, HALF TAB, ONCE
     Route: 048
     Dates: start: 20030620
  22. ARIPIPRAZOLE [Concomitant]
     Indication: PARANOIA
     Route: 048
     Dates: start: 20061113
  23. SILDENAFIL CITRATE [Concomitant]
     Indication: ERECTILE DYSFUNCTION
     Route: 048
     Dates: start: 20040723
  24. BUPROPION HCL [Concomitant]
     Indication: DEPRESSION
     Dosage: 75 MG FOR 7 DAYS AND THEN 2 TABS, ONCE
     Route: 048
     Dates: start: 20040723
  25. SERTRALINE [Concomitant]
     Dosage: 50 MG, ONCE
     Route: 048
     Dates: start: 20010130

REACTIONS (4)
  - DIABETIC RETINOPATHY [None]
  - HYPOGLYCAEMIA [None]
  - TYPE 1 DIABETES MELLITUS [None]
  - TYPE 2 DIABETES MELLITUS [None]
